FAERS Safety Report 5936423-9 (Version None)
Quarter: 2008Q4

REPORT INFORMATION
  Report Type: 
  Country: None (occurrence: None)
  Receive Date: 20081020
  Receipt Date: 20080828
  Transmission Date: 20090506
  Serious: Yes (Other)
  Sender: FDA-Public Use
  Company Number: US-WYE-H05817808

PATIENT
  Age: 54 Year
  Sex: Female
  Weight: 90.8 kg

DRUGS (3)
  1. ADVIL PM [Suspect]
     Indication: ARTHRALGIA
     Dosage: 2 CAPLETS 1X PER 1 DAY, ORAL
     Route: 048
     Dates: start: 20080827, end: 20080827
  2. SYNTHROID [Concomitant]
  3. BENICAR (OLMESARTIN MEDOXOMIL) [Concomitant]

REACTIONS (1)
  - TREMOR [None]
